FAERS Safety Report 5041773-7 (Version None)
Quarter: 2006Q2

REPORT INFORMATION
  Report Type: 
  Country: None (occurrence: None)
  Receive Date: 20060630
  Receipt Date: 20060621
  Transmission Date: 20061013
  Serious: Yes (Hospitalization, Other)
  Sender: FDA-Public Use
  Company Number: 2006-01309

PATIENT
  Age: 67 Year
  Sex: Female
  Weight: 70.7 kg

DRUGS (6)
  1. VELCADE [Suspect]
     Dates: start: 20060411, end: 20060508
  2. COUMADIN [Suspect]
     Indication: DEEP VEIN THROMBOSIS
     Dates: start: 20051001
  3. MEGACE [Concomitant]
  4. CYANOCOBALAMIN [Concomitant]
  5. VITAMIN B6 [Concomitant]
  6. VICODIN [Concomitant]

REACTIONS (8)
  - ANAEMIA [None]
  - DYSPNOEA EXACERBATED [None]
  - GASTROINTESTINAL HAEMORRHAGE [None]
  - INTERNATIONAL NORMALISED RATIO INCREASED [None]
  - NAUSEA [None]
  - OEDEMA PERIPHERAL [None]
  - PROTHROMBIN TIME PROLONGED [None]
  - STAPHYLOCOCCAL BACTERAEMIA [None]
